FAERS Safety Report 23151706 (Version 1)
Quarter: 2023Q4

REPORT INFORMATION
  Report Type: Spontaneous
  Country: US (occurrence: None)
  Receive Date: 20231107
  Receipt Date: 20231107
  Transmission Date: 20240110
  Serious: No
  Sender: FDA-Public Use
  Company Number: US-ARIS GLOBAL-VLR202304-000056

PATIENT
  Age: 65 Year
  Sex: Male
  Weight: 89 kg

DRUGS (3)
  1. MOVANTIK [Suspect]
     Active Substance: NALOXEGOL OXALATE
     Indication: Constipation
     Route: 048
     Dates: start: 202010
  2. SUBOXONE [Concomitant]
     Active Substance: BUPRENORPHINE HYDROCHLORIDE\NALOXONE HYDROCHLORIDE
     Indication: Pain
     Dosage: UNK
     Route: 065
  3. MIRALAX [Concomitant]
     Active Substance: POLYETHYLENE GLYCOL 3350
     Indication: Product used for unknown indication
     Route: 065

REACTIONS (5)
  - Malaise [Unknown]
  - COVID-19 [Not Recovered/Not Resolved]
  - Therapeutic product effect decreased [Unknown]
  - Product use issue [Unknown]
  - Product dose omission in error [Recovered/Resolved]

NARRATIVE: CASE EVENT DATE: 20230401
